FAERS Safety Report 23060019 (Version 2)
Quarter: 2023Q4

REPORT INFORMATION
  Report Type: Spontaneous
  Country: DE (occurrence: DE)
  Receive Date: 20231012
  Receipt Date: 20231121
  Transmission Date: 20240109
  Serious: Yes (Hospitalization, Other)
  Sender: FDA-Public Use
  Company Number: DE-Merck Healthcare KGaA-2023480545

PATIENT
  Age: 29 Year
  Sex: Female

DRUGS (5)
  1. MAVENCLAD [Suspect]
     Active Substance: CLADRIBINE
     Indication: Multiple sclerosis
     Dosage: YEAR ONE MONTH ONE THERAPY: TWO TABLETS ON DAYS 1 TO 5
     Route: 048
     Dates: start: 20180514, end: 20180519
  2. MAVENCLAD [Suspect]
     Active Substance: CLADRIBINE
     Dosage: YEAR ONE MONTH TWO THERAPY: TWO TABLETS ON DAYS 1 TO 5
     Route: 048
     Dates: start: 20180611, end: 20180616
  3. MAVENCLAD [Suspect]
     Active Substance: CLADRIBINE
     Dosage: YEAR TWO MONTH ONE THERAPY
     Route: 048
     Dates: start: 20190513, end: 20190518
  4. MAVENCLAD [Suspect]
     Active Substance: CLADRIBINE
     Dosage: YEAR TWO MONTH TWO THERAPY
     Route: 048
     Dates: start: 20190612, end: 20190617
  5. MAVENCLAD [Suspect]
     Active Substance: CLADRIBINE
     Dosage: YEAR THREE THERAPY
     Route: 048
     Dates: start: 20230620, end: 20230623

REACTIONS (2)
  - Rectal haemorrhage [Recovered/Resolved]
  - Lymphocyte count decreased [Recovering/Resolving]

NARRATIVE: CASE EVENT DATE: 20230910
